FAERS Safety Report 6667959-3 (Version None)
Quarter: 2010Q2

REPORT INFORMATION
  Report Type: 
  Country: None (occurrence: None)
  Receive Date: 20100405
  Receipt Date: 20100331
  Transmission Date: 20101027
  Serious: Yes (Hospitalization)
  Sender: FDA-Public Use
  Company Number: US-GILEAD-2010-0027969

PATIENT
  Sex: Male

DRUGS (2)
  1. LETAIRIS [Suspect]
     Indication: PULMONARY ARTERIAL HYPERTENSION
     Route: 048
     Dates: start: 20090323
  2. REMODULIN [Concomitant]

REACTIONS (3)
  - HYPERBILIRUBINAEMIA [None]
  - PULMONARY HYPERTENSION [None]
  - RENAL FAILURE ACUTE [None]
